FAERS Safety Report 12281384 (Version 1)
Quarter: 2016Q2

REPORT INFORMATION
  Report Type: Spontaneous
  Country: US (occurrence: None)
  Receive Date: 20160418
  Receipt Date: 20160418
  Transmission Date: 20160815
  Serious: Yes (Other)
  Sender: FDA-Public Use
  Company Number: None

PATIENT
  Age: 68 Year
  Sex: Female
  Weight: 58.97 kg

DRUGS (2)
  1. INSULIN [Concomitant]
     Active Substance: INSULIN NOS
  2. CHANTIX [Suspect]
     Active Substance: VARENICLINE TARTRATE
     Indication: SMOKING CESSATION THERAPY
     Dosage: IN THE MORNING NO PACKAGE. PRODUCT PUT IN MEDICINE BOTT

REACTIONS (6)
  - Verbal abuse [None]
  - Blood glucose increased [None]
  - Aggression [None]
  - Screaming [None]
  - Anger [None]
  - Personality change [None]

NARRATIVE: CASE EVENT DATE: 20160307
